FAERS Safety Report 25460894 (Version 1)
Quarter: 2025Q2

REPORT INFORMATION
  Report Type: Spontaneous
  Country: JP (occurrence: JP)
  Receive Date: 20250620
  Receipt Date: 20250620
  Transmission Date: 20250716
  Serious: Yes (Disabling)
  Sender: ANI
  Company Number: JP-ANIPHARMA-2025-JP-000091

PATIENT
  Age: 40 Year
  Sex: Male

DRUGS (9)
  1. PANDEL [Suspect]
     Active Substance: HYDROCORTISONE PROBUTATE
     Indication: Product used for unknown indication
     Route: 061
  2. DEXAMETHASONE [Suspect]
     Active Substance: DEXAMETHASONE
  3. NEO-MEDROL [Suspect]
     Active Substance: METHYLPREDNISOLONE\NEOMYCIN SULFATE
     Route: 061
  4. DIFLUCORTOLONE VALERATE [Suspect]
     Active Substance: DIFLUCORTOLONE VALERATE
     Route: 061
  5. DIFLUCORTOLONE VALERATE [Suspect]
     Active Substance: DIFLUCORTOLONE VALERATE
     Route: 061
  6. HYDROCORTISONE ACETATE [Suspect]
     Active Substance: HYDROCORTISONE ACETATE
     Route: 061
  7. PREDNISOLONE VALERATE ACETATE [Suspect]
     Active Substance: PREDNISOLONE VALERATE ACETATE
     Route: 061
  8. DEXAMETHASONE VALERATE [Suspect]
     Active Substance: DEXAMETHASONE VALERATE
     Route: 061
  9. DIFLUPREDNATE [Suspect]
     Active Substance: DIFLUPREDNATE
     Route: 061

REACTIONS (1)
  - Glaucoma [Recovered/Resolved with Sequelae]
